FAERS Safety Report 4629683-8 (Version None)
Quarter: 2005Q2

REPORT INFORMATION
  Report Type: 
  Country: None (occurrence: None)
  Receive Date: 20050407
  Receipt Date: 20050317
  Transmission Date: 20051028
  Serious: Yes (Death, Hospitalization)
  Sender: FDA-Public Use
  Company Number: JP_041205296

PATIENT
  Age: 63 Year
  Sex: Male
  Weight: 64 kg

DRUGS (2)
  1. GEMZAR [Suspect]
     Indication: LUNG NEOPLASM MALIGNANT
     Dosage: 1000 MG OTHER
     Route: 050
     Dates: start: 20040121, end: 20041116
  2. DOXETAXEL [Concomitant]

REACTIONS (15)
  - BLOOD BICARBONATE INCREASED [None]
  - BLOOD PH DECREASED [None]
  - BODY TEMPERATURE INCREASED [None]
  - C-REACTIVE PROTEIN INCREASED [None]
  - DELIRIUM [None]
  - DISEASE RECURRENCE [None]
  - DYSPNOEA EXERTIONAL [None]
  - HYPOXIA [None]
  - LUNG NEOPLASM MALIGNANT [None]
  - MALIGNANT NEOPLASM PROGRESSION [None]
  - PLEURAL MESOTHELIOMA MALIGNANT [None]
  - PNEUMONITIS [None]
  - PRODUCTIVE COUGH [None]
  - RESPIRATORY FAILURE [None]
  - RESTLESSNESS [None]
